FAERS Safety Report 8216842-0 (Version None)
Quarter: 2012Q1

REPORT INFORMATION
  Report Type: 
  Country: None (occurrence: None)
  Receive Date: 20120316
  Receipt Date: 20120308
  Transmission Date: 20120608
  Serious: Yes (Hospitalization)
  Sender: FDA-Public Use
  Company Number: SE-ASTRAZENECA-2012SE15915

PATIENT
  Age: 88 Year
  Sex: Female

DRUGS (10)
  1. FUROSEMIDE [Concomitant]
  2. ARTELAC [Concomitant]
  3. ZOPIKLON [Concomitant]
  4. WARFARIN SODIUM [Concomitant]
  5. SELOKEN ZOK [Concomitant]
  6. FERROUS SULFATE TAB [Concomitant]
  7. ATACAND [Suspect]
     Indication: ESSENTIAL HYPERTENSION
     Route: 048
     Dates: end: 20120217
  8. CITALOPRAM HYDROBROMIDE [Concomitant]
  9. ALVEDON [Concomitant]
  10. POLYETHYLENE GLYCOL [Concomitant]

REACTIONS (2)
  - ANGIOEDEMA [None]
  - TONGUE OEDEMA [None]
